FAERS Safety Report 8164274-6 (Version None)
Quarter: 2012Q1

REPORT INFORMATION
  Report Type: 
  Country: None (occurrence: None)
  Receive Date: 20120224
  Receipt Date: 20111122
  Transmission Date: 20120608
  Serious: No
  Sender: FDA-Public Use
  Company Number: US-ASTRAZENECA-2011SE70933

PATIENT
  Age: 63 Year
  Sex: Female
  Weight: 85.7 kg

DRUGS (4)
  1. PRILOSEC [Suspect]
     Indication: GASTROOESOPHAGEAL REFLUX DISEASE
     Route: 048
  2. HYDROCHLOROTHIAZIDE [Concomitant]
     Indication: HYPERTENSION
  3. VITAMIN D [Concomitant]
     Indication: ARTHRITIS
  4. VIMOVO [Suspect]
     Indication: ARTHRITIS
     Dosage: 500 MG/20 MG, EVERY MORNING
     Route: 048
     Dates: start: 20111101

REACTIONS (2)
  - BLOOD PRESSURE DECREASED [None]
  - DIZZINESS [None]
